FAERS Safety Report 26123336 (Version 2)
Quarter: 2025Q4

REPORT INFORMATION
  Report Type: Spontaneous
  Country: EU (occurrence: EU)
  Receive Date: 20251204
  Receipt Date: 20251209
  Transmission Date: 20260118
  Serious: Yes (Other)
  Sender: JOHNSON AND JOHNSON
  Company Number: EU-CELLTRION INC.-2025GR042583

PATIENT
  Sex: Male

DRUGS (3)
  1. INFLIXIMAB [Suspect]
     Active Substance: INFLIXIMAB
     Indication: Inflammatory bowel disease
  2. INFLIXIMAB [Suspect]
     Active Substance: INFLIXIMAB
     Indication: Inflammatory bowel disease
     Dosage: TWO INTRAVENOUS INFUSIONS PRIOR STARTING SUBCUTANEOUS INFLIXIMAB
  3. INFLIXIMAB [Suspect]
     Active Substance: INFLIXIMAB
     Dosage: LONG-TERM INTRAVENOUS INFLIXIMAB AT A DOSE OF 5 MG/KG

REACTIONS (2)
  - Neoplasm malignant [Unknown]
  - Therapy change [Unknown]
